FAERS Safety Report 7013545-5 (Version None)
Quarter: 2010Q3

REPORT INFORMATION
  Report Type: 
  Country: None (occurrence: None)
  Receive Date: 20100924
  Receipt Date: 20100915
  Transmission Date: 20110219
  Serious: Yes (Hospitalization, Other)
  Sender: FDA-Public Use
  Company Number: PHHY2010DE59209

PATIENT
  Age: 60 Year
  Sex: Male

DRUGS (2)
  1. LEPONEX [Suspect]
     Dosage: 50 MG/DAY
     Route: 048
     Dates: start: 19970101
  2. LEPONEX [Suspect]
     Dosage: 100 MG/ DAY
     Route: 048
     Dates: start: 20100616

REACTIONS (8)
  - ABSCESS [None]
  - DEMENTIA [None]
  - INFLAMMATION [None]
  - PERITONITIS [None]
  - PLATELET COUNT INCREASED [None]
  - PNEUMOTHORAX [None]
  - STOMA CARE [None]
  - SURGERY [None]
